FAERS Safety Report 8135123-7 (Version None)
Quarter: 2012Q1

REPORT INFORMATION
  Report Type: 
  Country: None (occurrence: None)
  Receive Date: 20120210
  Receipt Date: 20120203
  Transmission Date: 20120608
  Serious: Yes (Hospitalization)
  Sender: FDA-Public Use
  Company Number: 2012SP006680

PATIENT
  Age: 50 Year
  Sex: Female

DRUGS (3)
  1. REBETOL [Suspect]
     Dosage: 800 MG;QD;PO
     Route: 048
     Dates: start: 20120116
  2. PEG-INTRON [Suspect]
     Dosage: 1.5 MCG/KG;QW;SC
     Route: 058
     Dates: start: 20120116
  3. TELAVIC (TELAPREVIR) (INVESTIGATIONAL DRUG) [Suspect]
     Dosage: 2250 MG;PO
     Route: 048
     Dates: start: 20120116

REACTIONS (2)
  - ASPARTATE AMINOTRANSFERASE INCREASED [None]
  - ALANINE AMINOTRANSFERASE INCREASED [None]
